FAERS Safety Report 8271527-X (Version None)
Quarter: 2012Q2

REPORT INFORMATION
  Report Type: 
  Country: None (occurrence: None)
  Receive Date: 20120410
  Receipt Date: 20120405
  Transmission Date: 20120825
  Serious: No
  Sender: FDA-Public Use
  Company Number: US-PFIZER INC-2012086767

PATIENT
  Sex: Female
  Weight: 66.213 kg

DRUGS (4)
  1. ALAVERT [Suspect]
     Indication: SNEEZING
  2. LISINOPRIL [Concomitant]
     Indication: HYPERTENSION
     Dosage: UNK
  3. ALAVERT [Suspect]
     Indication: HYPERSENSITIVITY
     Dosage: UNK, AS NEEDED
     Route: 048
     Dates: start: 20120402, end: 20120405
  4. ALAVERT [Suspect]
     Indication: RHINORRHOEA

REACTIONS (1)
  - DRUG INEFFECTIVE [None]
